FAERS Safety Report 8271313-0 (Version None)
Quarter: 2012Q2

REPORT INFORMATION
  Report Type: 
  Country: None (occurrence: None)
  Receive Date: 20120410
  Receipt Date: 20120404
  Transmission Date: 20120825
  Serious: Yes (Other)
  Sender: FDA-Public Use
  Company Number: FR-FRI-1000029564

PATIENT
  Age: 46 Year
  Sex: Male

DRUGS (3)
  1. LEXOMIL [Concomitant]
  2. MILNACIPRAN [Suspect]
     Route: 048
  3. MILNACIPRAN [Suspect]
     Indication: DEPRESSION
     Dosage: 50-150 MG DAILY
     Route: 048

REACTIONS (3)
  - BIFASCICULAR BLOCK [None]
  - HEMIPARESIS [None]
  - SYNCOPE [None]
